FAERS Safety Report 7913889-6 (Version None)
Quarter: 2011Q4

REPORT INFORMATION
  Report Type: 
  Country: None (occurrence: None)
  Receive Date: 20111115
  Receipt Date: 20111111
  Transmission Date: 20120403
  Serious: Yes (Other)
  Sender: FDA-Public Use
  Company Number: CH-PFIZER INC-2011276552

PATIENT
  Sex: Female

DRUGS (3)
  1. LYRICA [Interacting]
     Indication: PAIN
     Dosage: 300 MG DAILY
  2. LYRICA [Suspect]
     Indication: ALCOHOL REHABILITATION
     Dosage: 25 MG DAILY
  3. TRAMADOL HCL [Interacting]
     Indication: PAIN

REACTIONS (4)
  - DRUG INTERACTION [None]
  - COGNITIVE DISORDER [None]
  - MEMORY IMPAIRMENT [None]
  - VISUAL IMPAIRMENT [None]
